FAERS Safety Report 6705756-0 (Version None)
Quarter: 2010Q2

REPORT INFORMATION
  Report Type: 
  Country: None (occurrence: None)
  Receive Date: 20100503
  Receipt Date: 20080715
  Transmission Date: 20101027
  Serious: Yes (Other)
  Sender: FDA-Public Use
  Company Number: US-BAYER-200818046NA

PATIENT
  Age: 27 Year
  Sex: Female
  Weight: 91 kg

DRUGS (2)
  1. MIRENA [Suspect]
     Indication: CONTRACEPTION
     Dosage: 20 MCG/DAY CONTINUOUS
     Route: 015
     Dates: start: 20041101, end: 20041101
  2. MIRENA [Suspect]
     Dosage: 20 MCG/DAY CONTINUOUS
     Route: 015
     Dates: start: 20041101

REACTIONS (4)
  - ADNEXA UTERI PAIN [None]
  - HEART RATE DECREASED [None]
  - OVARIAN CYST [None]
  - SYNCOPE [None]
